FAERS Safety Report 9477135 (Version 3)
Quarter: 2013Q4

REPORT INFORMATION
  Report Type: Spontaneous
  Country: US (occurrence: US)
  Receive Date: 20130826
  Receipt Date: 20131115
  Transmission Date: 20140711
  Serious: No
  Sender: FDA-Public Use
  Company Number: US-PFIZER INC-2013242628

PATIENT
  Age: 83 Year
  Sex: Female
  Weight: 90.7 kg

DRUGS (4)
  1. LYRICA [Suspect]
     Indication: NEUROPATHY PERIPHERAL
     Dosage: 50 MG, 3X/DAY
  2. ATENOLOL [Concomitant]
     Indication: HYPERTENSION
     Dosage: UNK, 2X/DAY
  3. GLIPIZIDE [Concomitant]
     Indication: DIABETES MELLITUS
     Dosage: UNK
  4. METFORMIN [Concomitant]
     Indication: DIABETES MELLITUS
     Dosage: UNK

REACTIONS (5)
  - Pain [Unknown]
  - Somnolence [Unknown]
  - Insomnia [Unknown]
  - Irritability [Unknown]
  - Pruritus generalised [Unknown]
